FAERS Safety Report 5556285-1 (Version None)
Quarter: 2007Q4

REPORT INFORMATION
  Report Type: 
  Country: None (occurrence: None)
  Receive Date: 20071203
  Receipt Date: 20071119
  Transmission Date: 20080405
  Serious: Yes (Other)
  Sender: FDA-Public Use
  Company Number: B0496449A

PATIENT
  Age: 50 Year
  Sex: Female

DRUGS (4)
  1. MELPHALAN UNSPECIFIED INJECTABLE (MELPHALAN) (GENERIC) [Suspect]
     Indication: MULTIPLE MYELOMA
     Dosage: INTRAVENOUS
     Route: 042
  2. STEM CELL TRANSPLANT [Concomitant]
  3. PLATELETS [Concomitant]
  4. RED BLOOD CELLS [Concomitant]

REACTIONS (3)
  - CONDITION AGGRAVATED [None]
  - HEPATITIS B [None]
  - STEM CELL TRANSPLANT [None]
